FAERS Safety Report 14502425 (Version 2)
Quarter: 2018Q1

REPORT INFORMATION
  Report Type: Spontaneous
  Country: IT (occurrence: IT)
  Receive Date: 20180208
  Receipt Date: 20180226
  Transmission Date: 20180509
  Serious: Yes (Death, Hospitalization)
  Sender: FDA-Public Use
  Company Number: IT-BIOVITRUM-2018IT0096

PATIENT
  Age: 27 Year
  Sex: Female

DRUGS (4)
  1. BROAD-SPECTRUM ANTIBIOTICS [Concomitant]
     Indication: INFECTION
  2. METHYLPREDNISOLONE. [Concomitant]
     Active Substance: METHYLPREDNISOLONE
     Dosage: INTRAVENOUS PULSE METHYLPREDNISOLONE (120 MG/D FOR 2 CONSECUTIVE DAYS)
     Route: 042
  3. CORTICOSTEROIDS [Concomitant]
     Active Substance: CORTICOSTEROID NOS
     Indication: TUMOUR NECROSIS FACTOR RECEPTOR-ASSOCIATED PERIODIC SYNDROME
     Dosage: HIGH-DOSE
     Route: 048
  4. ANAKINRA [Suspect]
     Active Substance: ANAKINRA
     Indication: TUMOUR NECROSIS FACTOR RECEPTOR-ASSOCIATED PERIODIC SYNDROME

REACTIONS (9)
  - Cardiac arrest [Fatal]
  - Infection [Not Recovered/Not Resolved]
  - Haemodynamic instability [Fatal]
  - Cholecystitis acute [Fatal]
  - Angiopathy [Fatal]
  - Abdominal pain [Fatal]
  - Agitation [Fatal]
  - Raynaud^s phenomenon [Recovered/Resolved]
  - Ventricular fibrillation [Fatal]
